FAERS Safety Report 7050492-7 (Version None)
Quarter: 2010Q4

REPORT INFORMATION
  Report Type: 
  Country: None (occurrence: None)
  Receive Date: 20101018
  Receipt Date: 20101004
  Transmission Date: 20110411
  Serious: Yes (Hospitalization)
  Sender: FDA-Public Use
  Company Number: DK-ELI_LILLY_AND_COMPANY-DK201009006465

PATIENT
  Sex: Female

DRUGS (2)
  1. ZYPADHERA [Suspect]
     Indication: SCHIZOPHRENIA, PARANOID TYPE
     Dosage: 405 MG, EVERY 3 WEEKS
     Route: 030
     Dates: start: 20100317
  2. NOZINAN [Concomitant]
     Indication: SEDATIVE THERAPY
     Dosage: 25 MG, OTHER
     Route: 048
     Dates: start: 20100301

REACTIONS (9)
  - BLOOD CREATINE PHOSPHOKINASE INCREASED [None]
  - DIZZINESS [None]
  - DYSARTHRIA [None]
  - DYSKINESIA [None]
  - FATIGUE [None]
  - MUSCLE RIGIDITY [None]
  - OVERDOSE [None]
  - PYREXIA [None]
  - SOMNOLENCE [None]
